FAERS Safety Report 7255646-2 (Version None)
Quarter: 2011Q1

REPORT INFORMATION
  Report Type: 
  Country: None (occurrence: None)
  Receive Date: 20110129
  Receipt Date: 20100820
  Transmission Date: 20110831
  Serious: No
  Sender: FDA-Public Use
  Company Number: US-ABBOTT-10P-163-0666682-00

PATIENT
  Sex: Male
  Weight: 113.5 kg

DRUGS (4)
  1. INSULIN [Suspect]
     Indication: DIABETES MELLITUS
  2. HUMIRA [Suspect]
     Indication: ANKYLOSING SPONDYLITIS
     Route: 058
  3. HUMIRA [Suspect]
     Indication: ANKYLOSING SPONDYLITIS
     Route: 058
  4. HUMIRA [Suspect]
     Route: 058

REACTIONS (5)
  - PAIN [None]
  - HYPERKERATOSIS [None]
  - DRUG INEFFECTIVE [None]
  - BLOOD GLUCOSE INCREASED [None]
  - ANKYLOSING SPONDYLITIS [None]
